FAERS Safety Report 16419630 (Version 1)
Quarter: 2019Q2

REPORT INFORMATION
  Report Type: Spontaneous
  Country: DE (occurrence: DE)
  Receive Date: 20190612
  Receipt Date: 20190612
  Transmission Date: 20190711
  Serious: Yes (Other)
  Sender: FDA-Public Use
  Company Number: DE-DEXPHARM-20180501

PATIENT
  Age: 45 Year
  Sex: Female

DRUGS (1)
  1. PERIOCHIP [Suspect]
     Active Substance: CHLORHEXIDINE GLUCONATE
     Indication: PERIODONTITIS
     Route: 004
     Dates: start: 20180614

REACTIONS (1)
  - Application site necrosis [Unknown]

NARRATIVE: CASE EVENT DATE: 20180614
